FAERS Safety Report 25762269 (Version 1)
Quarter: 2025Q3

REPORT INFORMATION
  Report Type: Spontaneous
  Country: GB (occurrence: GB)
  Receive Date: 20250904
  Receipt Date: 20250904
  Transmission Date: 20251020
  Serious: Yes (Other)
  Sender: PFIZER
  Company Number: None

PATIENT
  Age: 40 Year
  Sex: Female

DRUGS (4)
  1. DOXYCYCLINE [Interacting]
     Active Substance: DOXYCYCLINE
     Indication: Sinusitis
     Dates: start: 20250808, end: 20250810
  2. CITALOPRAM [Concomitant]
     Active Substance: CITALOPRAM
     Indication: Anxiety
  3. OESTROGEL [ESTRADIOL] [Concomitant]
  4. PROGESTERONE [Concomitant]
     Active Substance: PROGESTERONE

REACTIONS (4)
  - Drug interaction [Recovering/Resolving]
  - Hallucination [Unknown]
  - Palpitations [Unknown]
  - Panic attack [Unknown]

NARRATIVE: CASE EVENT DATE: 20250809
